FAERS Safety Report 18218291 (Version 9)
Quarter: 2022Q2

REPORT INFORMATION
  Report Type: Spontaneous
  Country: AU (occurrence: AU)
  Receive Date: 20200901
  Receipt Date: 20220608
  Transmission Date: 20220720
  Serious: Yes (Hospitalization, Other)
  Sender: FDA-Public Use
  Company Number: AU-OTSUKA-2020_020684

PATIENT
  Sex: Male

DRUGS (20)
  1. ABILIFY [Suspect]
     Active Substance: ARIPIPRAZOLE
     Indication: Product used for unknown indication
     Dosage: 10 MG, UNK
     Route: 048
     Dates: start: 2013
  2. ABILIFY [Suspect]
     Active Substance: ARIPIPRAZOLE
     Dosage: 10 MG, UNK
     Route: 065
     Dates: start: 2015
  3. ARIPIPRAZOLE [Suspect]
     Active Substance: ARIPIPRAZOLE
     Indication: Blood prolactin decreased
     Dosage: 10 MG
     Route: 065
     Dates: start: 2014
  4. ARIPIPRAZOLE [Suspect]
     Active Substance: ARIPIPRAZOLE
     Dosage: 10 MG
     Route: 065
     Dates: start: 2013
  5. ARIPIPRAZOLE [Suspect]
     Active Substance: ARIPIPRAZOLE
     Dosage: 10 MG
     Route: 065
     Dates: start: 2015
  6. ARIPIPRAZOLE [Suspect]
     Active Substance: ARIPIPRAZOLE
     Dosage: 5 MG
     Route: 065
     Dates: start: 2016
  7. ARIPIPRAZOLE [Suspect]
     Active Substance: ARIPIPRAZOLE
     Dosage: 10 MG
     Route: 065
     Dates: start: 2017
  8. ARIPIPRAZOLE [Suspect]
     Active Substance: ARIPIPRAZOLE
     Dosage: 5 MG
     Route: 065
     Dates: start: 2017
  9. REXULTI [Suspect]
     Active Substance: BREXPIPRAZOLE
     Indication: Schizophrenia
     Dosage: 2 MG, UNK
     Route: 065
     Dates: start: 2018
  10. REXULTI [Suspect]
     Active Substance: BREXPIPRAZOLE
     Indication: Bipolar disorder
     Dosage: 1 MG, UNK
     Route: 065
  11. INVEGA SUSTENNA [Suspect]
     Active Substance: PALIPERIDONE PALMITATE
     Indication: Product used for unknown indication
     Dosage: 3 MG, UNK
     Route: 065
     Dates: start: 2015
  12. INVEGA SUSTENNA [Suspect]
     Active Substance: PALIPERIDONE PALMITATE
     Dosage: 75 MG, UNK
     Route: 065
     Dates: start: 2016
  13. INVEGA SUSTENNA [Suspect]
     Active Substance: PALIPERIDONE PALMITATE
     Dosage: 25 MG, UNK
     Route: 065
     Dates: start: 2017, end: 2018
  14. INVEGA SUSTENNA [Suspect]
     Active Substance: PALIPERIDONE PALMITATE
     Dosage: UNK
     Route: 065
     Dates: start: 2018
  15. PALIPERIDONE [Suspect]
     Active Substance: PALIPERIDONE
     Indication: Product used for unknown indication
     Dosage: 150 MG, UNK
     Route: 065
     Dates: start: 2014
  16. PALIPERIDONE [Suspect]
     Active Substance: PALIPERIDONE
     Dosage: 100 MG, UNK
     Route: 065
     Dates: start: 2015
  17. PALIPERIDONE [Suspect]
     Active Substance: PALIPERIDONE
     Dosage: 75 MG, UNK
     Route: 065
     Dates: start: 2016
  18. PALIPERIDONE [Suspect]
     Active Substance: PALIPERIDONE
     Dosage: 50 MG, UNK
     Route: 065
     Dates: start: 2016
  19. PALIPERIDONE [Suspect]
     Active Substance: PALIPERIDONE
     Dosage: 25 MG
     Route: 065
     Dates: start: 2017
  20. QUETIAPINE [Suspect]
     Active Substance: QUETIAPINE
     Indication: Product used for unknown indication
     Dosage: UNK
     Route: 065
     Dates: start: 2013

REACTIONS (16)
  - Sinus node dysfunction [Unknown]
  - Orthostatic hypertension [Unknown]
  - Condition aggravated [Unknown]
  - Angina unstable [Unknown]
  - Presyncope [Unknown]
  - Cardiac arrest [Unknown]
  - Chest discomfort [Not Recovered/Not Resolved]
  - Hypotension [Unknown]
  - Dizziness postural [Not Recovered/Not Resolved]
  - Chest pain [Unknown]
  - Dizziness [Unknown]
  - Syncope [Unknown]
  - Nausea [Unknown]
  - Drug intolerance [Unknown]
  - Product use in unapproved indication [Unknown]
  - Product use in unapproved indication [Unknown]

NARRATIVE: CASE EVENT DATE: 20180101
